FAERS Safety Report 5972510-7 (Version None)
Quarter: 2008Q4

REPORT INFORMATION
  Report Type: 
  Country: None (occurrence: None)
  Receive Date: 20081201
  Receipt Date: 20081121
  Transmission Date: 20090506
  Serious: Yes (Hospitalization)
  Sender: FDA-Public Use
  Company Number: B0539609A

PATIENT
  Age: 72 Year
  Sex: Female

DRUGS (12)
  1. SERETIDE [Suspect]
     Indication: ASTHMA
     Dosage: 2PUFF TWICE PER DAY
     Route: 055
     Dates: start: 20050101
  2. VENTOLIN [Suspect]
     Indication: ASTHMA
     Dosage: 100MCG AS REQUIRED
     Route: 055
  3. CALCICHEW [Suspect]
     Indication: OSTEOARTHRITIS
     Dosage: 1TAB PER DAY
     Route: 048
  4. CARBAMAZEPINE [Suspect]
     Indication: EPILEPSY
     Dosage: 200MG THREE TIMES PER DAY
     Route: 048
  5. CODEINE PHOSPHATE [Suspect]
     Indication: MIGRAINE
     Dosage: 30MG AS REQUIRED
     Route: 048
  6. GAVISCON [Suspect]
     Indication: ILL-DEFINED DISORDER
     Dosage: 10ML AS REQUIRED
     Route: 048
  7. PANTOPRAZOLE SODIUM [Suspect]
     Indication: ILL-DEFINED DISORDER
     Dosage: 20MG PER DAY
     Route: 048
  8. ACETAMINOPHEN [Suspect]
     Indication: MIGRAINE
     Dosage: 1G AS REQUIRED
     Route: 048
  9. RISEDRONATE SODIUM [Suspect]
     Indication: OSTEOARTHRITIS
     Dosage: 35MG PER DAY
     Route: 048
  10. LEVOTHYROXINE SODIUM [Suspect]
     Dosage: 100MCG PER DAY
     Route: 048
  11. WARFARIN SODIUM [Suspect]
     Indication: DEEP VEIN THROMBOSIS
     Route: 048
  12. ZOLMITRIPTAN [Suspect]
     Indication: MIGRAINE
     Dosage: 2.5MG AS REQUIRED
     Route: 048

REACTIONS (1)
  - CEREBROVASCULAR ACCIDENT [None]
